FAERS Safety Report 9537811 (Version 3)
Quarter: 2013Q4

REPORT INFORMATION
  Report Type: Spontaneous
  Country: FR (occurrence: FR)
  Receive Date: 20130919
  Receipt Date: 20131129
  Transmission Date: 20140711
  Serious: Yes (Hospitalization, Other)
  Sender: FDA-Public Use
  Company Number: FR-BRISTOL-MYERS SQUIBB COMPANY-19350123

PATIENT
  Age: 80 Year
  Sex: Female

DRUGS (13)
  1. ORENCIA FOR INJ [Suspect]
     Indication: RHEUMATOID ARTHRITIS
     Dosage: INTERRUPTED:30JAN2013,?28FEB13-28MAY13,CONTINUED,1 A MONTH
     Route: 042
     Dates: start: 20111205
  2. CORTANCYL [Suspect]
     Route: 048
     Dates: start: 2011
  3. DEXAMBUTOL [Suspect]
     Indication: LUNG DISORDER
     Route: 048
  4. ZECLAR [Suspect]
     Indication: LUNG DISORDER
     Route: 048
     Dates: start: 20130124, end: 20130822
  5. ANSATIPINE [Suspect]
     Indication: LUNG DISORDER
     Route: 048
     Dates: start: 20130124, end: 201306
  6. IZILOX [Suspect]
     Indication: LUNG DISORDER
     Route: 048
     Dates: end: 20130715
  7. RENITEC [Suspect]
     Route: 048
  8. DIFFU-K [Concomitant]
  9. DOLIPRANE [Concomitant]
  10. SOTALEX [Concomitant]
  11. CHONDROSULF [Concomitant]
  12. DIMETANE [Concomitant]
     Dosage: ADULT SYRUP
  13. ACTONEL [Concomitant]

REACTIONS (4)
  - Atypical mycobacterial pneumonia [Not Recovered/Not Resolved]
  - Hepatitis [Recovering/Resolving]
  - Corneal deposits [Not Recovered/Not Resolved]
  - Vision blurred [Not Recovered/Not Resolved]
